FAERS Safety Report 12364560 (Version 1)
Quarter: 2016Q2

REPORT INFORMATION
  Report Type: Spontaneous
  Country: US (occurrence: US)
  Receive Date: 20160512
  Receipt Date: 20160512
  Transmission Date: 20160815
  Serious: Yes (Other)
  Sender: FDA-Public Use
  Company Number: US-MYLANLABS-2016M1019431

PATIENT

DRUGS (2)
  1. MYRBETRIQ [Suspect]
     Active Substance: MIRABEGRON
     Indication: PRODUCT USED FOR UNKNOWN INDICATION
     Dosage: 50 MG, QD
  2. HYDROCHLOROTHIAZIDE. [Suspect]
     Active Substance: HYDROCHLOROTHIAZIDE
     Indication: PRODUCT USED FOR UNKNOWN INDICATION
     Dosage: UNK
     Dates: end: 20160311

REACTIONS (9)
  - Depression [Unknown]
  - Disorientation [Unknown]
  - Hypersomnia [Unknown]
  - Asthenia [Recovered/Resolved]
  - Blood pressure systolic increased [Unknown]
  - Urinary tract infection [Unknown]
  - Decreased appetite [Unknown]
  - Renal impairment [Unknown]
  - Fall [Unknown]

NARRATIVE: CASE EVENT DATE: 20140620
